FAERS Safety Report 8386188-9 (Version None)
Quarter: 2012Q2

REPORT INFORMATION
  Report Type: 
  Country: None (occurrence: None)
  Receive Date: 20120525
  Receipt Date: 20120514
  Transmission Date: 20120825
  Serious: Yes (Other)
  Sender: FDA-Public Use
  Company Number: US-SANOFI-AVENTIS-2012SA034400

PATIENT

DRUGS (3)
  1. TRILEPTAL [Suspect]
     Indication: EPILEPSY
     Route: 065
  2. LANTUS [Suspect]
     Dosage: IN THE MORNING DOSE:8 UNIT(S)
     Route: 058
  3. LANTUS [Suspect]
     Route: 058

REACTIONS (3)
  - HYPOGLYCAEMIA [None]
  - DRUG INTERACTION [None]
  - EPILEPSY [None]
